FAERS Safety Report 16851134 (Version 9)
Quarter: 2020Q2

REPORT INFORMATION
  Report Type: Spontaneous
  Country: US (occurrence: US)
  Receive Date: 20190925
  Receipt Date: 20200608
  Transmission Date: 20200713
  Serious: Yes (Other)
  Sender: FDA-Public Use
  Company Number: US-PFIZER INC-2019408966

PATIENT
  Age: 56 Year
  Sex: Female
  Weight: 72.57 kg

DRUGS (1)
  1. XELJANZ XR [Suspect]
     Active Substance: TOFACITINIB CITRATE
     Indication: RHEUMATOID ARTHRITIS
     Dosage: 11 MG, 1X/DAY
     Route: 048
     Dates: start: 201910, end: 2020

REACTIONS (9)
  - Pre-existing condition improved [Unknown]
  - Musculoskeletal stiffness [Unknown]
  - Hair growth abnormal [Unknown]
  - Impaired healing [Unknown]
  - Contusion [Unknown]
  - Muscle rupture [Not Recovered/Not Resolved]
  - Fall [Not Recovered/Not Resolved]
  - Aphonia [Unknown]
  - Therapeutic response unexpected [Unknown]

NARRATIVE: CASE EVENT DATE: 20200224
